FAERS Safety Report 13042235 (Version 2)
Quarter: 2017Q1

REPORT INFORMATION
  Report Type: Spontaneous
  Country: US (occurrence: US)
  Receive Date: 20161219
  Receipt Date: 20170117
  Transmission Date: 20170428
  Serious: No
  Sender: FDA-Public Use
  Company Number: US-PFIZER INC-2016587145

PATIENT
  Sex: Male

DRUGS (1)
  1. FLECTOR [Suspect]
     Active Substance: DICLOFENAC EPOLAMINE
     Dosage: UNK
     Route: 062

REACTIONS (4)
  - Flushing [Unknown]
  - Abdominal pain upper [Unknown]
  - Feeling hot [Unknown]
  - Intentional product misuse [Unknown]
